FAERS Safety Report 5955794-0 (Version None)
Quarter: 2008Q4

REPORT INFORMATION
  Report Type: 
  Country: None (occurrence: None)
  Receive Date: 20081117
  Receipt Date: 20080602
  Transmission Date: 20090506
  Serious: No
  Sender: FDA-Public Use
  Company Number: US-B.I. PHARMACEUTICALS,INC./RIDGEFIELD-2008-BP-08553BP

PATIENT
  Age: 40 Year
  Sex: Male

DRUGS (3)
  1. ZANTAC 75 [Suspect]
     Indication: DYSPEPSIA
     Dosage: 75MG
     Route: 048
     Dates: start: 20080601, end: 20080601
  2. OXYCODONE HCL [Concomitant]
     Indication: BACK DISORDER
  3. OXYCONTIN [Concomitant]
     Indication: SLEEP DISORDER

REACTIONS (5)
  - FATIGUE [None]
  - JOINT SWELLING [None]
  - OEDEMA PERIPHERAL [None]
  - SCREAMING [None]
  - SLEEP TALKING [None]
